FAERS Safety Report 4309469-4 (Version None)
Quarter: 2004Q1

REPORT INFORMATION
  Report Type: 
  Country: None (occurrence: None)
  Receive Date: 20040301
  Receipt Date: 20040213
  Transmission Date: 20041129
  Serious: Yes (Other)
  Sender: FDA-Public Use
  Company Number: WAES 01083511

PATIENT
  Age: 57 Year
  Sex: Male

DRUGS (4)
  1. ZOCOR [Suspect]
     Indication: HYPERCHOLESTEROLAEMIA
     Dosage: SEE IMAGE
     Route: 048
     Dates: start: 19950101, end: 20010501
  2. ZOCOR [Suspect]
     Indication: HYPERCHOLESTEROLAEMIA
     Dosage: SEE IMAGE
     Route: 048
     Dates: start: 20010506, end: 20010601
  3. ASPIRIN [Concomitant]
  4. ATENOLOL [Concomitant]

REACTIONS (3)
  - BLOOD CREATINE PHOSPHOKINASE INCREASED [None]
  - HEPATIC FUNCTION ABNORMAL [None]
  - MYOCARDIAL INFARCTION [None]
